FAERS Safety Report 24009299 (Version 3)
Quarter: 2024Q3

REPORT INFORMATION
  Report Type: Spontaneous
  Country: US (occurrence: US)
  Receive Date: 20240625
  Receipt Date: 20240711
  Transmission Date: 20241017
  Serious: No
  Sender: HETERO
  Company Number: US-HETERO-HET2024US01810

PATIENT
  Age: 79 Year
  Weight: 81.64 kg

DRUGS (4)
  1. LOSARTAN [Suspect]
     Active Substance: LOSARTAN
     Indication: Hypertension
     Dosage: 100 MILLIGRAM
     Route: 048
     Dates: start: 202206
  2. LOSARTAN [Suspect]
     Active Substance: LOSARTAN
     Dosage: 50 MILLIGRAM, QD, SPLIT INTO HALF
     Route: 048
     Dates: end: 20231017
  3. LOSARTAN [Suspect]
     Active Substance: LOSARTAN
     Dosage: 100 MILLIGRAM
     Route: 065
     Dates: start: 2010
  4. CARVEDILOL [Concomitant]
     Active Substance: CARVEDILOL
     Indication: Product used for unknown indication
     Dosage: UNK (EACH ARE INGESTED SEPARATELY)
     Route: 065

REACTIONS (7)
  - Abdominal discomfort [Recovered/Resolved]
  - Taste disorder [Recovered/Resolved]
  - Salivary hypersecretion [Recovered/Resolved]
  - Blood pressure decreased [Recovered/Resolved]
  - Product taste abnormal [Unknown]
  - Wrong technique in product usage process [Unknown]
  - Product formulation issue [Unknown]

NARRATIVE: CASE EVENT DATE: 20221201
